FAERS Safety Report 11784609 (Version 9)
Quarter: 2016Q2

REPORT INFORMATION
  Report Type: Report from Study
  Country: US (occurrence: US)
  Receive Date: 20151130
  Receipt Date: 20160606
  Transmission Date: 20160815
  Serious: Yes (Death, Hospitalization)
  Sender: FDA-Public Use
  Company Number: US-ROCHE-1668289

PATIENT
  Age: 68 Year
  Sex: Male
  Weight: 66.03 kg

DRUGS (10)
  1. DULCOLAX (BISACODYL) [Concomitant]
     Active Substance: BISACODYL
     Route: 065
     Dates: start: 20151027
  2. BENADRYL [Concomitant]
     Active Substance: DIPHENHYDRAMINE HYDROCHLORIDE
     Route: 065
     Dates: start: 20151027
  3. CAPECITABINE. [Suspect]
     Active Substance: CAPECITABINE
     Indication: OESOPHAGEAL ADENOCARCINOMA
     Dosage: ON DAY 1-14 EVERY 21 DAYS, DATE OF MOST RECENT DOSE 11/NOV/2015
     Route: 048
     Dates: start: 20151103
  4. PRILOSEC [Concomitant]
     Active Substance: OMEPRAZOLE MAGNESIUM
     Route: 065
     Dates: start: 20151027
  5. BABY ASPIRIN [Concomitant]
     Active Substance: ASPIRIN
     Route: 065
     Dates: start: 20151027
  6. TESTOSTERONE. [Concomitant]
     Active Substance: TESTOSTERONE
     Route: 065
     Dates: start: 20151027
  7. ALLEGRA [Concomitant]
     Active Substance: FEXOFENADINE HYDROCHLORIDE
     Route: 065
     Dates: start: 20151027
  8. CIALIS [Concomitant]
     Active Substance: TADALAFIL
     Route: 065
     Dates: start: 20151027
  9. ZOCOR [Concomitant]
     Active Substance: SIMVASTATIN
     Route: 065
     Dates: start: 20151027
  10. CISPLATIN. [Suspect]
     Active Substance: CISPLATIN
     Indication: OESOPHAGEAL ADENOCARCINOMA
     Dosage: DATE OF MOST RECENT DOSE 03/NOV/2015
     Route: 042
     Dates: start: 20151103

REACTIONS (2)
  - Sepsis [Fatal]
  - Acute respiratory distress syndrome [Fatal]

NARRATIVE: CASE EVENT DATE: 20151116
